FAERS Safety Report 4538909-0 (Version None)
Quarter: 2004Q4

REPORT INFORMATION
  Report Type: 
  Country: None (occurrence: None)
  Receive Date: 20041222
  Receipt Date: 20041210
  Transmission Date: 20050328
  Serious: Yes (Other)
  Sender: FDA-Public Use
  Company Number: USA030639811

PATIENT
  Age: 80 Year
  Sex: Female
  Weight: 57 kg

DRUGS (8)
  1. FORTEO [Suspect]
     Indication: OSTEOPOROSIS
     Dosage: 20 UG DAY
     Dates: start: 20030301, end: 20040101
  2. EVISTA [Suspect]
  3. SYNTHROID [Concomitant]
  4. CALCIUM GLUCONATE [Concomitant]
  5. ADVIL [Concomitant]
  6. THYROID TAB [Concomitant]
  7. MULTIVITAMIN [Concomitant]
  8. VITAMIN D [Concomitant]

REACTIONS (16)
  - ABDOMINAL DISTENSION [None]
  - BLOOD CHOLESTEROL INCREASED [None]
  - BLOOD TRIGLYCERIDES INCREASED [None]
  - BODY HEIGHT DECREASED [None]
  - BUNDLE BRANCH BLOCK RIGHT [None]
  - CONSTIPATION [None]
  - DEEP VEIN THROMBOSIS [None]
  - DRUG INEFFECTIVE [None]
  - GALLBLADDER DISORDER [None]
  - HYPERPLASTIC CHOLECYSTOPATHY [None]
  - LOW DENSITY LIPOPROTEIN INCREASED [None]
  - MEDICATION ERROR [None]
  - PAIN [None]
  - RASH MACULAR [None]
  - SKIN DISCOLOURATION [None]
  - THYROID FUNCTION TEST ABNORMAL [None]
